FAERS Safety Report 18881566 (Version 1)
Quarter: 2021Q1

REPORT INFORMATION
  Report Type: Spontaneous
  Country: US (occurrence: US)
  Receive Date: 20210212
  Receipt Date: 20210212
  Transmission Date: 20210420
  Serious: No
  Sender: FDA-Public Use
  Company Number: US-SA-2021SA045329

PATIENT
  Age: 8 Year
  Sex: Male

DRUGS (1)
  1. DUPIXENT [Suspect]
     Active Substance: DUPILUMAB
     Indication: DERMATITIS ATOPIC
     Dosage: 200 MG OTHER
     Route: 058
     Dates: start: 202010

REACTIONS (7)
  - Miliaria [Unknown]
  - Scratch [Unknown]
  - Erythema [Unknown]
  - Dermatitis [Unknown]
  - Pruritus [Unknown]
  - Pigmentation disorder [Unknown]
  - Ocular hyperaemia [Unknown]

NARRATIVE: CASE EVENT DATE: 20210120
